FAERS Safety Report 25340413 (Version 1)
Quarter: 2025Q2

REPORT INFORMATION
  Report Type: Spontaneous
  Country: US (occurrence: US)
  Receive Date: 20250521
  Receipt Date: 20250521
  Transmission Date: 20250717
  Serious: Yes (Death)
  Sender: TAIHO ONCOLOGY INC
  Company Number: US-TAIHOP-2025-005280

PATIENT
  Age: 71 Year
  Sex: Male

DRUGS (1)
  1. LONSURF [Suspect]
     Active Substance: TIPIRACIL HYDROCHLORIDE\TRIFLURIDINE
     Indication: Product used for unknown indication
     Route: 048

REACTIONS (1)
  - Septic shock [Fatal]
